FAERS Safety Report 4451104-9 (Version None)
Quarter: 2004Q3

REPORT INFORMATION
  Report Type: 
  Country: None (occurrence: None)
  Receive Date: 20040916
  Receipt Date: 20040102
  Transmission Date: 20050211
  Serious: Yes (Death, Hospitalization, Disabling)
  Sender: FDA-Public Use
  Company Number: 200410013EU

PATIENT
  Age: 74 Year
  Sex: Female

DRUGS (6)
  1. ARAVA [Suspect]
     Indication: RHEUMATOID ARTHRITIS
     Route: 048
     Dates: start: 20031001, end: 20031223
  2. ENBREL [Suspect]
     Indication: RHEUMATOID ARTHRITIS
     Route: 058
     Dates: start: 20010601, end: 20031220
  3. LEVAXIN [Concomitant]
     Route: 048
  4. COZAAR [Concomitant]
     Route: 048
  5. PREDNISOLONE [Concomitant]
     Indication: RHEUMATOID ARTHRITIS
     Route: 048
  6. HIPREX [Concomitant]
     Route: 048

REACTIONS (25)
  - ALANINE AMINOTRANSFERASE INCREASED [None]
  - ASPARTATE AMINOTRANSFERASE INCREASED [None]
  - BLOOD CREATINE PHOSPHOKINASE INCREASED [None]
  - BLOOD IMMUNOGLOBULIN A INCREASED [None]
  - BLOOD POTASSIUM DECREASED [None]
  - COMPLEMENT FACTOR C4 DECREASED [None]
  - DEHYDRATION [None]
  - DIFFICULTY IN WALKING [None]
  - EATING DISORDER [None]
  - GAMMA-GLUTAMYLTRANSFERASE INCREASED [None]
  - GASTROINTESTINAL ULCER [None]
  - GUILLAIN-BARRE SYNDROME [None]
  - HAEMOGLOBIN DECREASED [None]
  - HYPOTHYROIDISM [None]
  - MARKEDLY REDUCED DIETARY INTAKE [None]
  - NEUROPATHY PERIPHERAL [None]
  - NEUTROPHIL COUNT INCREASED [None]
  - OEDEMA PERIPHERAL [None]
  - OSTEOPENIA [None]
  - PARAESTHESIA [None]
  - PNEUMONIA [None]
  - POLYNEUROPATHY [None]
  - PROTEIN TOTAL DECREASED [None]
  - SEROLOGY POSITIVE [None]
  - WHITE BLOOD CELL COUNT INCREASED [None]
